FAERS Safety Report 22152425 (Version 1)
Quarter: 2023Q1

REPORT INFORMATION
  Report Type: Spontaneous
  Country: US (occurrence: None)
  Receive Date: 20230328
  Receipt Date: 20230328
  Transmission Date: 20230417
  Serious: Yes (Hospitalization)
  Sender: FDA-Public Use
  Company Number: None

PATIENT
  Age: 54 Year
  Sex: Male
  Weight: 71.67 kg

DRUGS (13)
  1. WELIREG [Suspect]
     Active Substance: BELZUTIFAN
     Indication: Renal cancer
     Dosage: FREQUENCY : DAILY;?
     Route: 048
  2. CARAFATE [Concomitant]
     Active Substance: SUCRALFATE
  3. DECADRON [Concomitant]
     Active Substance: DEXAMETHASONE
  4. LENVIMA [Concomitant]
     Active Substance: LENVATINIB
  5. VITAMINS [Concomitant]
     Active Substance: VITAMINS
  6. NORCO [Concomitant]
     Active Substance: ACETAMINOPHEN\HYDROCODONE BITARTRATE
  7. PROPRANOLOL HYDROCHLORIDE [Concomitant]
     Active Substance: PROPRANOLOL HYDROCHLORIDE
  8. PROTONIX [Concomitant]
     Active Substance: PANTOPRAZOLE SODIUM
  9. SENNA DOCUSATE [Concomitant]
  10. TESSALON [Concomitant]
     Active Substance: BENZONATATE
  11. VITAMINS [Concomitant]
     Active Substance: VITAMINS
  12. VITAMIN D3 [Concomitant]
     Active Substance: CHOLECALCIFEROL
  13. ZYPREXA [Concomitant]
     Active Substance: OLANZAPINE

REACTIONS (2)
  - Hospitalisation [None]
  - Therapy cessation [None]
